FAERS Safety Report 22108597 (Version 1)
Quarter: 2023Q1

REPORT INFORMATION
  Report Type: Spontaneous
  Country: US (occurrence: None)
  Receive Date: 20230316
  Receipt Date: 20230316
  Transmission Date: 20230418
  Serious: Yes (Other)
  Sender: FDA-Public Use
  Company Number: None

PATIENT
  Age: 36 Year
  Sex: Female
  Weight: 63.9 kg

DRUGS (8)
  1. BUPRENORPHINE\NALOXONE [Suspect]
     Active Substance: BUPRENORPHINE\NALOXONE
     Indication: Back pain
     Dosage: OTHER QUANTITY : 1 FILM;?FREQUENCY : 3 TIMES A DAY;?
     Route: 060
     Dates: start: 20140301, end: 20210316
  2. CAMRESE [Concomitant]
     Active Substance: ETHINYL ESTRADIOL\LEVONORGESTREL
  3. VALTREX [Concomitant]
     Active Substance: VALACYCLOVIR HYDROCHLORIDE
  4. AMITRIPTYLINE [Concomitant]
     Active Substance: AMITRIPTYLINE
  5. IRON [Concomitant]
     Active Substance: IRON
  6. allegra 180 gel capsule [Concomitant]
  7. IBUPROFEN [Concomitant]
  8. TYLENOL [Concomitant]
     Active Substance: ACETAMINOPHEN

REACTIONS (3)
  - Tooth fracture [None]
  - Masticatory pain [None]
  - Tooth loss [None]

NARRATIVE: CASE EVENT DATE: 20211013
